FAERS Safety Report 9761564 (Version 1)
Quarter: 2013Q4

REPORT INFORMATION
  Report Type: Spontaneous
  Country: US (occurrence: US)
  Receive Date: 20131216
  Receipt Date: 20131216
  Transmission Date: 20140711
  Serious: Yes (Other)
  Sender: FDA-Public Use
  Company Number: US-TEVA-449958USA

PATIENT
  Age: 41 Year
  Sex: Female

DRUGS (1)
  1. FENTORA [Suspect]
     Route: 002

REACTIONS (1)
  - Drug withdrawal syndrome [Not Recovered/Not Resolved]
